FAERS Safety Report 7261235-6 (Version None)
Quarter: 2011Q1

REPORT INFORMATION
  Report Type: 
  Country: None (occurrence: None)
  Receive Date: 20110130
  Receipt Date: 20100916
  Transmission Date: 20110831
  Serious: No
  Sender: FDA-Public Use
  Company Number: US-ABBOTT-10P-163-0672131-00

PATIENT
  Sex: Female
  Weight: 127.12 kg

DRUGS (5)
  1. MULTIVITAMIN [Concomitant]
     Indication: PRODUCT USED FOR UNKNOWN INDICATION
  2. UNKNOWN CHOLESTEROL MEDICATION [Concomitant]
     Indication: BLOOD CHOLESTEROL INCREASED
  3. HUMIRA [Suspect]
     Indication: PSORIATIC ARTHROPATHY
     Dates: start: 20100501
  4. HUMIRA [Suspect]
     Indication: COLITIS ULCERATIVE
  5. COLAZAL [Suspect]
     Indication: COLITIS ULCERATIVE

REACTIONS (2)
  - COLITIS ULCERATIVE [None]
  - INJECTION SITE PAIN [None]
